FAERS Safety Report 9815089 (Version 1)
Quarter: 2014Q1

REPORT INFORMATION
  Report Type: Spontaneous
  Country: US (occurrence: US)
  Receive Date: 20140114
  Receipt Date: 20140114
  Transmission Date: 20141002
  Serious: Yes (Death, Hospitalization)
  Sender: FDA-Public Use
  Company Number: US-PFIZER INC-2014005412

PATIENT
  Age: 63 Year
  Sex: Male

DRUGS (2)
  1. LIDOCAINE HCL [Suspect]
     Route: 050
  2. MIDAZOLAM [Suspect]
     Dosage: UNK
     Route: 050

REACTIONS (1)
  - Death [Fatal]
